FAERS Safety Report 10482617 (Version 3)
Quarter: 2014Q4

REPORT INFORMATION
  Report Type: Spontaneous
  Country: US (occurrence: US)
  Receive Date: 20140929
  Receipt Date: 20141118
  Transmission Date: 20150528
  Serious: Yes (Other)
  Sender: FDA-Public Use
  Company Number: US-PFIZER INC-2014266332

PATIENT
  Age: 75 Year
  Sex: Female
  Weight: 73.92 kg

DRUGS (5)
  1. DICLO MISOPR [Suspect]
     Active Substance: DICLOFENAC SODIUM\MISOPROSTOL
     Dosage: DICLOFENAC 75MG/MISOPROSTOL 0.2MG, UNK
  2. KLOR-CON M10 [Suspect]
     Active Substance: POTASSIUM CHLORIDE
     Dosage: 10 MEQ, ER TABLETS, UNK
  3. BENICAR [Suspect]
     Active Substance: OLMESARTAN MEDOXOMIL
     Dosage: 40 MG, 1X/DAY
  4. LYRICA [Suspect]
     Active Substance: PREGABALIN
     Dosage: 40 MG, 1X/DAY
     Dates: start: 2009, end: 2009
  5. VESICARE [Suspect]
     Active Substance: SOLIFENACIN SUCCINATE
     Dosage: 5 MG, 1X/DAY

REACTIONS (3)
  - Diabetes mellitus [Unknown]
  - Feeling abnormal [Unknown]
  - Insomnia [Unknown]

NARRATIVE: CASE EVENT DATE: 2013
